FAERS Safety Report 6614036-3 (Version None)
Quarter: 2010Q1

REPORT INFORMATION
  Report Type: 
  Country: None (occurrence: None)
  Receive Date: 20100304
  Receipt Date: 20100302
  Transmission Date: 20100710
  Serious: Yes (Life-Threatening, Hospitalization)
  Sender: FDA-Public Use
  Company Number: GB-WYE-G05671210

PATIENT
  Sex: Male

DRUGS (3)
  1. GEMTUZUMAB OZOGAMICIN [Suspect]
     Indication: ACUTE MYELOID LEUKAEMIA
     Dosage: UNKNOWN
     Dates: start: 20100204
  2. CYTARABINE [Suspect]
     Dosage: UNKNOWN
     Dates: start: 20100204
  3. DAUNORUBICIN [Suspect]
     Dosage: UNKNOWN
     Dates: start: 20100204

REACTIONS (2)
  - CARDIAC ARREST [None]
  - SEPSIS [None]
